FAERS Safety Report 19809932 (Version 1)
Quarter: 2021Q3

REPORT INFORMATION
  Report Type: Report from Study
  Country: None (occurrence: ZA)
  Receive Date: 20210909
  Receipt Date: 20210909
  Transmission Date: 20211014
  Serious: Yes (Hospitalization, Other)
  Sender: FDA-Public Use
  Company Number: ZA-ABBVIE-21K-143-4023441-00

PATIENT
  Age: 53 Year
  Sex: Female

DRUGS (1)
  1. HUMIRA [Suspect]
     Active Substance: ADALIMUMAB
     Indication: RHEUMATOID ARTHRITIS
     Route: 058
     Dates: start: 20210315, end: 202104

REACTIONS (6)
  - Renal abscess [Recovered/Resolved]
  - Lymphadenopathy [Recovered/Resolved with Sequelae]
  - Parotitis [Unknown]
  - Pyrexia [Unknown]
  - Lymphadenopathy [Recovered/Resolved with Sequelae]
  - Nephritis [Recovered/Resolved with Sequelae]

NARRATIVE: CASE EVENT DATE: 20210330
